FAERS Safety Report 8472895-6 (Version None)
Quarter: 2012Q2

REPORT INFORMATION
  Report Type: 
  Country: None (occurrence: None)
  Receive Date: 20120622
  Receipt Date: 20120622
  Transmission Date: 20120825
  Serious: Yes (Hospitalization)
  Sender: FDA-Public Use
  Company Number: None

PATIENT
  Sex: Male

DRUGS (2)
  1. PRADAXA [Suspect]
     Indication: CEREBROVASCULAR ACCIDENT
     Dosage: 150 MG ONCE A DAY PO
     Route: 048
     Dates: start: 20120523, end: 20120526
  2. PRADAXA [Suspect]
     Indication: INTRACARDIAC THROMBUS
     Dosage: 150 MG ONCE A DAY PO
     Route: 048
     Dates: start: 20120523, end: 20120526

REACTIONS (3)
  - ASTHENIA [None]
  - BLOOD URINE PRESENT [None]
  - HAEMORRHAGE [None]
